FAERS Safety Report 7755790-7 (Version None)
Quarter: 2011Q3

REPORT INFORMATION
  Report Type: 
  Country: None (occurrence: None)
  Receive Date: 20110916
  Receipt Date: 20110912
  Transmission Date: 20111222
  Serious: Yes (Hospitalization, Other)
  Sender: FDA-Public Use
  Company Number: US-TEVA-296042USA

PATIENT
  Sex: Female
  Weight: 124.4 kg

DRUGS (12)
  1. NABUMETONE [Suspect]
     Indication: TENDONITIS
  2. MULTI-VITAMINS [Concomitant]
  3. ACETYLSALICYLIC ACID [Concomitant]
  4. PROMETHAZINE [Concomitant]
  5. ERGOCALCIFEROL [Concomitant]
  6. METHIMAZOLE [Concomitant]
     Indication: HYPOTHYROIDISM
     Route: 048
  7. ALPRAZOLAM [Concomitant]
  8. VERPAMIL HCL [Concomitant]
  9. NITROGLYCERIN [Concomitant]
  10. NABUMETONE [Suspect]
     Indication: INFECTION
     Dosage: 1500 MILLIGRAM;
     Route: 048
     Dates: start: 20110526
  11. METHIMAZOLE [Concomitant]
     Indication: HYPERTHYROIDISM
  12. CLOPIDOGREL [Concomitant]
     Indication: STENT PLACEMENT

REACTIONS (31)
  - MALAISE [None]
  - ALOPECIA [None]
  - RASH [None]
  - RETCHING [None]
  - CHEST PAIN [None]
  - HEPATIC STEATOSIS [None]
  - ANXIETY [None]
  - SPLEEN DISORDER [None]
  - ASTHENIA [None]
  - DIARRHOEA [None]
  - RASH MACULO-PAPULAR [None]
  - FOREIGN BODY SENSATION IN EYES [None]
  - NAUSEA [None]
  - SKIN EXFOLIATION [None]
  - NASAL CONGESTION [None]
  - FATIGUE [None]
  - COUGH [None]
  - ARTHRALGIA [None]
  - SKIN BURNING SENSATION [None]
  - LOSS OF CONSCIOUSNESS [None]
  - EYE IRRITATION [None]
  - SWELLING [None]
  - LIVER FUNCTION TEST ABNORMAL [None]
  - MEMORY IMPAIRMENT [None]
  - DYSPNOEA [None]
  - TENDON PAIN [None]
  - PRURITUS [None]
  - DRY EYE [None]
  - STEVENS-JOHNSON SYNDROME [None]
  - PAIN [None]
  - MYALGIA [None]
